FAERS Safety Report 26015739 (Version 1)
Quarter: 2025Q4

REPORT INFORMATION
  Report Type: Spontaneous
  Country: EU (occurrence: EU)
  Receive Date: 20251109
  Receipt Date: 20251109
  Transmission Date: 20260118
  Serious: Yes (Other)
  Sender: AMGEN
  Company Number: EU-AMGEN-POLSP2025217724

PATIENT

DRUGS (3)
  1. BEVACIZUMAB [Suspect]
     Active Substance: BEVACIZUMAB
     Indication: Astrocytoma
     Dosage: UNK
     Route: 065
  2. BEVACIZUMAB [Suspect]
     Active Substance: BEVACIZUMAB
     Indication: Glioblastoma
  3. BEVACIZUMAB [Suspect]
     Active Substance: BEVACIZUMAB
     Indication: Oligodendroglioma

REACTIONS (5)
  - Astrocytoma [Unknown]
  - Glioblastoma [Unknown]
  - Oligodendroglioma [Unknown]
  - Pulmonary embolism [Unknown]
  - Hypertension [Unknown]
